FAERS Safety Report 18269809 (Version 4)
Quarter: 2020Q4

REPORT INFORMATION
  Report Type: Spontaneous
  Country: JP (occurrence: JP)
  Receive Date: 20200915
  Receipt Date: 20201203
  Transmission Date: 20210113
  Serious: Yes (Other)
  Sender: FDA-Public Use
  Company Number: JP-APOTEX-2020AP017929

PATIENT
  Age: 54 Year
  Sex: Male

DRUGS (1)
  1. PAXIL [Suspect]
     Active Substance: PAROXETINE HYDROCHLORIDE
     Indication: SOCIAL ANXIETY DISORDER
     Dosage: 5 MG, QD
     Route: 048

REACTIONS (1)
  - Retrograde ejaculation [Not Recovered/Not Resolved]
